FAERS Safety Report 12637936 (Version 1)
Quarter: 2016Q3

REPORT INFORMATION
  Report Type: Spontaneous
  Country: US (occurrence: US)
  Receive Date: 20160809
  Receipt Date: 20160809
  Transmission Date: 20161109
  Serious: Yes (Other)
  Sender: FDA-Public Use
  Company Number: US-SA-2016SA099052

PATIENT
  Sex: Male

DRUGS (17)
  1. CRESTOR [Concomitant]
     Active Substance: ROSUVASTATIN CALCIUM
  2. GLIMEPIRIDE. [Concomitant]
     Active Substance: GLIMEPIRIDE
  3. LISINOPRIL. [Concomitant]
     Active Substance: LISINOPRIL
  4. OXYCOD [Concomitant]
     Dosage: 5-500MG
  5. NITROSTAT [Concomitant]
     Active Substance: NITROGLYCERIN
  6. TAMSULOSIN [Concomitant]
     Active Substance: TAMSULOSIN
  7. LEVEMIR [Concomitant]
     Active Substance: INSULIN DETEMIR
  8. PRALUENT [Suspect]
     Active Substance: ALIROCUMAB
     Route: 065
  9. ALIROCUMAB PREFILLED PEN [Concomitant]
     Active Substance: ALIROCUMAB
  10. CARVEDILOL. [Concomitant]
     Active Substance: CARVEDILOL
  11. ESCITALOPRAM [Concomitant]
     Active Substance: ESCITALOPRAM OXALATE
  12. FLEXPEN [Concomitant]
     Active Substance: UNSPECIFIED INGREDIENT
  13. LEVOFLOXACIN. [Concomitant]
     Active Substance: LEVOFLOXACIN
  14. AMLODIPINE [Concomitant]
     Active Substance: AMLODIPINE BESYLATE
  15. AMPICILLIN [Concomitant]
     Active Substance: AMPICILLIN
  16. ISOSORBIDE MONONITRATE. [Concomitant]
     Active Substance: ISOSORBIDE MONONITRATE
  17. CLOPIDOGREL [Concomitant]
     Active Substance: CLOPIDOGREL BISULFATE

REACTIONS (3)
  - Diarrhoea [Not Recovered/Not Resolved]
  - Urinary tract infection [Not Recovered/Not Resolved]
  - Formication [Not Recovered/Not Resolved]
